FAERS Safety Report 16125300 (Version 1)
Quarter: 2019Q1

REPORT INFORMATION
  Report Type: Other
  Country: US (occurrence: US)
  Receive Date: 20190327
  Receipt Date: 20190327
  Transmission Date: 20190418
  Serious: Yes (Death, Other)
  Sender: FDA-Public Use
  Company Number: US-VERASTEM-2019-00041

PATIENT

DRUGS (1)
  1. COPIKTRA [Suspect]
     Active Substance: DUVELISIB
     Indication: ANAPLASTIC LARGE-CELL LYMPHOMA
     Dosage: 75 MG, BID
     Route: 048
     Dates: start: 20190303, end: 20190317

REACTIONS (6)
  - Prescribed overdose [Recovered/Resolved]
  - Splenomegaly [Not Recovered/Not Resolved]
  - Malignant neoplasm progression [Fatal]
  - Lactic acidosis [Not Recovered/Not Resolved]
  - Sepsis [Not Recovered/Not Resolved]
  - Product use in unapproved indication [Recovered/Resolved]

NARRATIVE: CASE EVENT DATE: 20190309
